FAERS Safety Report 4318461-5 (Version None)
Quarter: 2004Q1

REPORT INFORMATION
  Report Type: 
  Country: None (occurrence: None)
  Receive Date: 20040317
  Receipt Date: 20040317
  Transmission Date: 20041129
  Serious: Yes (Hospitalization)
  Sender: FDA-Public Use
  Company Number: None

PATIENT
  Age: 66 Year
  Sex: Female
  Weight: 77.1115 kg

DRUGS (11)
  1. GEMZAR [Suspect]
     Indication: DEHYDRATION
     Dosage: 1440/MG IV/Q3WKS
     Route: 042
     Dates: start: 20040119, end: 20040308
  2. CARBOPLATIN [Suspect]
     Indication: DEHYDRATION
     Dosage: 500 MG IV/Q3 WKS
     Route: 042
     Dates: start: 20040119, end: 20040301
  3. METOPROLOL [Concomitant]
  4. DILANTIN [Concomitant]
  5. NITROGLYCERIN [Concomitant]
  6. KEPPRA [Concomitant]
  7. ATIVAN [Concomitant]
  8. PHENERGAN [Concomitant]
  9. MEGACE [Concomitant]
  10. LORTAB [Concomitant]
  11. DECADRON [Concomitant]

REACTIONS (6)
  - ANOREXIA [None]
  - ASTHENIA [None]
  - BLOOD PRESSURE DECREASED [None]
  - CONFUSIONAL STATE [None]
  - FATIGUE [None]
  - THROMBOCYTOPENIA [None]
